FAERS Safety Report 24897013 (Version 1)
Quarter: 2025Q1

REPORT INFORMATION
  Report Type: Spontaneous
  Country: GB (occurrence: GB)
  Receive Date: 20250128
  Receipt Date: 20250128
  Transmission Date: 20250409
  Serious: No
  Sender: ALKEM
  Company Number: None

PATIENT
  Age: 60 Year
  Sex: Male

DRUGS (1)
  1. CEPHALEXIN [Suspect]
     Active Substance: CEPHALEXIN
     Indication: Lower respiratory tract infection
     Dosage: 500 MILLIGRAM, TID
     Route: 065
     Dates: start: 20240226

REACTIONS (1)
  - Eye irritation [Not Recovered/Not Resolved]
